FAERS Safety Report 15323510 (Version 2)
Quarter: 2018Q3

REPORT INFORMATION
  Report Type: Spontaneous
  Country: JP (occurrence: JP)
  Receive Date: 20180827
  Receipt Date: 20180913
  Transmission Date: 20181010
  Serious: Yes (Hospitalization, Other)
  Sender: FDA-Public Use
  Company Number: JP-009507513-1808JPN001412J

PATIENT
  Age: 72 Year
  Sex: Male
  Weight: 56 kg

DRUGS (7)
  1. URIEF [Concomitant]
     Active Substance: SILODOSIN
     Dosage: UNK
     Route: 048
  2. KEYTRUDA [Suspect]
     Active Substance: PEMBROLIZUMAB
     Indication: LARGE CELL LUNG CANCER
     Dosage: 200 MG, UNK
     Route: 041
     Dates: start: 20170706, end: 2018
  3. LANSOPRAZOLE OD [Concomitant]
     Active Substance: LANSOPRAZOLE
     Dosage: UNK
     Route: 048
  4. SODIUM FERROUS CITRATE [Concomitant]
     Active Substance: SODIUM FERROUS CITRATE
     Dosage: UNK
     Route: 048
  5. THYRADIN S [Concomitant]
     Active Substance: LEVOTHYROXINE SODIUM
     Dosage: UNK
     Route: 065
  6. MAGMITT [Concomitant]
     Active Substance: MAGNESIUM OXIDE
     Dosage: UNK
     Route: 065
  7. AVOLVE [Concomitant]
     Active Substance: DUTASTERIDE
     Dosage: UNK
     Route: 048

REACTIONS (1)
  - Cholangitis [Recovering/Resolving]

NARRATIVE: CASE EVENT DATE: 20180723
